FAERS Safety Report 14039640 (Version 1)
Quarter: 2017Q4

REPORT INFORMATION
  Report Type: Report from Study
  Country: FR (occurrence: FR)
  Receive Date: 20171004
  Receipt Date: 20171004
  Transmission Date: 20180321
  Serious: Yes (Other)
  Sender: FDA-Public Use
  Company Number: FR-JAZZ-JPI-P-033596

PATIENT
  Age: 27 Year
  Sex: Female
  Weight: 79 kg

DRUGS (5)
  1. XYREM [Suspect]
     Active Substance: SODIUM OXYBATE
     Indication: HYPERSOMNIA
     Dosage: 3G, BID
     Route: 048
     Dates: start: 20110609, end: 20130604
  2. MODIODAL [Concomitant]
     Active Substance: MODAFINIL
     Indication: HYPERSOMNIA
     Dosage: 100 MG, BID
     Dates: start: 200608, end: 20130604
  3. UVEDOSE [Concomitant]
     Active Substance: CHOLECALCIFEROL
     Indication: PRODUCT USED FOR UNKNOWN INDICATION
     Dosage: 1 PHIAL ONLY
  4. XYREM [Suspect]
     Active Substance: SODIUM OXYBATE
     Dosage: 4.5 G, QD
     Route: 048
  5. XYREM [Suspect]
     Active Substance: SODIUM OXYBATE
     Dosage: OPTIONAL SECOND INTAKE
     Route: 048

REACTIONS (4)
  - Gestational diabetes [Unknown]
  - Off label use [Unknown]
  - Exposure during pregnancy [Unknown]
  - Tonsillitis [Unknown]

NARRATIVE: CASE EVENT DATE: 201303
